FAERS Safety Report 18753673 (Version 1)
Quarter: 2021Q1

REPORT INFORMATION
  Report Type: Report from Study
  Country: None (occurrence: TW)
  Receive Date: 20210118
  Receipt Date: 20210118
  Transmission Date: 20210419
  Serious: Yes (Hospitalization)
  Sender: FDA-Public Use
  Company Number: TW-ABBVIE-20K-153-3710348-00

PATIENT
  Age: 38 Year
  Sex: Female
  Weight: 92 kg

DRUGS (1)
  1. HUMIRA [Suspect]
     Active Substance: ADALIMUMAB
     Indication: ANKYLOSING SPONDYLITIS
     Route: 058
     Dates: start: 20200210, end: 20201216

REACTIONS (16)
  - Pseudomonas infection [Recovered/Resolved]
  - Dysuria [Recovered/Resolved]
  - Lung infiltration [Recovered/Resolved]
  - Pyrexia [Recovered/Resolved]
  - Osteoporosis [Not Recovered/Not Resolved]
  - Scoliosis [Not Recovered/Not Resolved]
  - Wound complication [Recovered/Resolved]
  - Dyspnoea [Recovered/Resolved]
  - Neutrophil count increased [Unknown]
  - Microcytic anaemia [Not Recovered/Not Resolved]
  - Wound secretion [Recovered/Resolved]
  - Wound [Unknown]
  - Proteus infection [Unknown]
  - Lymphoedema [Recovered/Resolved]
  - Cellulitis [Recovered/Resolved]
  - C-reactive protein increased [Recovered/Resolved]

NARRATIVE: CASE EVENT DATE: 2020
